FAERS Safety Report 11229690 (Version 1)
Quarter: 2015Q2

REPORT INFORMATION
  Report Type: Spontaneous
  Country: US (occurrence: US)
  Receive Date: 20150630
  Receipt Date: 20150630
  Transmission Date: 20150821
  Serious: No
  Sender: FDA-Public Use
  Company Number: US-009507513-1506USA009554

PATIENT
  Age: 21 Year
  Sex: Female

DRUGS (1)
  1. IMPLANON [Suspect]
     Active Substance: ETONOGESTREL
     Indication: CONTRACEPTION
     Dosage: UNK
     Route: 059
     Dates: start: 20120216

REACTIONS (4)
  - Incorrect drug administration duration [Unknown]
  - Menorrhagia [Unknown]
  - Implant site pain [Unknown]
  - Implant site pruritus [Unknown]

NARRATIVE: CASE EVENT DATE: 20150217
